FAERS Safety Report 11886187 (Version 1)
Quarter: 2016Q1

REPORT INFORMATION
  Report Type: Report from Study
  Country: TW (occurrence: TW)
  Receive Date: 20160104
  Receipt Date: 20160104
  Transmission Date: 20160526
  Serious: Yes (Hospitalization)
  Sender: FDA-Public Use
  Company Number: TW-SA-2015SA221194

PATIENT
  Age: 59 Year
  Sex: Male
  Weight: 80.2 kg

DRUGS (5)
  1. NOVOMIX FLEXPEN [Concomitant]
     Active Substance: INSULIN ASPART
     Dosage: DOSE:24 UNIT(S)
  2. CLOPIDOGREL BISULFATE. [Suspect]
     Active Substance: CLOPIDOGREL BISULFATE
     Indication: ACUTE CORONARY SYNDROME
     Route: 048
     Dates: start: 20150219
  3. ASPIRIN. [Suspect]
     Active Substance: ASPIRIN
     Indication: ACUTE CORONARY SYNDROME
     Route: 048
     Dates: start: 20140211
  4. NEXIUM [Concomitant]
     Active Substance: ESOMEPRAZOLE MAGNESIUM
     Dosage: 40 MG
     Route: 048
  5. NOVOMIX FLEXPEN [Concomitant]
     Active Substance: INSULIN ASPART
     Dosage: DOSE:18 UNIT(S)

REACTIONS (5)
  - Vascular graft complication [Recovered/Resolved]
  - End stage renal disease [Recovered/Resolved]
  - Vascular graft occlusion [Recovered/Resolved]
  - Angioplasty [Unknown]
  - Thrombolysis [Unknown]

NARRATIVE: CASE EVENT DATE: 20151207
